FAERS Safety Report 16072603 (Version 2)
Quarter: 2019Q2

REPORT INFORMATION
  Report Type: Spontaneous
  Country: US (occurrence: US)
  Receive Date: 20190314
  Receipt Date: 20190503
  Transmission Date: 20190711
  Serious: No
  Sender: FDA-Public Use
  Company Number: US-MYLANLABS-2019M1018746

PATIENT
  Sex: Female
  Weight: 103 kg

DRUGS (1)
  1. MESALAMINE RECTAL SUPPOSITORIES [Suspect]
     Active Substance: MESALAMINE
     Indication: PRODUCT USED FOR UNKNOWN INDICATION
     Dosage: UNK
     Route: 054

REACTIONS (4)
  - Drug ineffective [Unknown]
  - Muscle spasms [Not Recovered/Not Resolved]
  - Diarrhoea [Not Recovered/Not Resolved]
  - Faeces soft [Not Recovered/Not Resolved]
